FAERS Safety Report 14837913 (Version 1)
Quarter: 2018Q2

REPORT INFORMATION
  Report Type: Spontaneous
  Country: SE (occurrence: SE)
  Receive Date: 20180502
  Receipt Date: 20180502
  Transmission Date: 20180711
  Serious: Yes (Other)
  Sender: FDA-Public Use
  Company Number: SE-PFIZER INC-2018173883

PATIENT
  Age: 37 Year
  Sex: Female

DRUGS (3)
  1. DOLCONTIN [Suspect]
     Active Substance: MORPHINE
     Dosage: 40 MG, DAILY
     Dates: start: 20180212
  2. DOLCONTIN [Suspect]
     Active Substance: MORPHINE
     Indication: PAIN
     Dosage: 120 MG, DAILY
     Dates: start: 20180212
  3. MORPHINE [Suspect]
     Active Substance: MORPHINE
     Indication: PAIN
     Dosage: UNK (MAXIMUM 10)
     Route: 058
     Dates: start: 2015, end: 201802

REACTIONS (1)
  - Oedema [Not Recovered/Not Resolved]

NARRATIVE: CASE EVENT DATE: 2016
